FAERS Safety Report 5451249-0 (Version None)
Quarter: 2007Q3

REPORT INFORMATION
  Report Type: 
  Country: None (occurrence: None)
  Receive Date: 20070913
  Receipt Date: 20070912
  Transmission Date: 20080115
  Serious: Yes (Other)
  Sender: FDA-Public Use
  Company Number: US-BRISTOL-MYERS SQUIBB COMPANY-13904990

PATIENT

DRUGS (1)
  1. IFOSFAMIDE [Suspect]

REACTIONS (1)
  - ENCEPHALOPATHY [None]
